FAERS Safety Report 8548948-0 (Version None)
Quarter: 2012Q3

REPORT INFORMATION
  Report Type: 
  Country: None (occurrence: None)
  Receive Date: 20120730
  Receipt Date: 20120718
  Transmission Date: 20120928
  Serious: Yes (Hospitalization, Other)
  Sender: FDA-Public Use
  Company Number: JP-ASTELLAS-2012US004758

PATIENT
  Sex: Male
  Weight: 55 kg

DRUGS (36)
  1. ERLOTINIB HYDROCHLORIDE [Suspect]
     Indication: ADENOCARCINOMA PANCREAS
     Dosage: 100 MG, UID/QD
     Route: 048
     Dates: start: 20110929, end: 20111004
  2. GEMCITABINE HYDROCHLORIDE [Suspect]
     Dosage: 1000 MG/M2, UID/QD
     Route: 041
     Dates: start: 20120111, end: 20120111
  3. LIPANCREA [Concomitant]
     Indication: PRODUCT USED FOR UNKNOWN INDICATION
     Dosage: 450 MG, UID/QD
     Route: 048
     Dates: end: 20111004
  4. BIO THREE [Concomitant]
     Dosage: 3 G, UID/QD
     Route: 048
     Dates: start: 20120301
  5. LANSOPRAZOLE [Concomitant]
     Indication: PRODUCT USED FOR UNKNOWN INDICATION
     Dosage: 15 MG, UID/QD
     Route: 048
     Dates: end: 20111004
  6. ERLOTINIB HYDROCHLORIDE [Suspect]
     Dosage: 100 MG, UID/QD
     Route: 048
     Dates: start: 20111019, end: 20111214
  7. GEMCITABINE HYDROCHLORIDE [Suspect]
     Dosage: 1000 MG/M2, UID/QD
     Route: 041
     Dates: start: 20120125, end: 20120125
  8. METFORMIN HCL [Concomitant]
     Indication: DIABETES MELLITUS
     Dosage: 500 MG, UID/QD
     Route: 048
     Dates: start: 20111004
  9. LOXOPROFEN [Concomitant]
     Indication: PRODUCT USED FOR UNKNOWN INDICATION
     Dosage: 180 MG, UID/QD
     Route: 048
     Dates: start: 20111026, end: 20111213
  10. GEMCITABINE HYDROCHLORIDE [Suspect]
     Dosage: 1000 MG/M2, UID/QD
     Route: 041
     Dates: start: 20111207, end: 20111207
  11. BIO THREE [Concomitant]
     Indication: PRODUCT USED FOR UNKNOWN INDICATION
     Dosage: 3 G, UID/QD
     Route: 048
     Dates: end: 20121004
  12. LANSOPRAZOLE [Concomitant]
     Dosage: 15 MG, UID/QD
     Route: 048
     Dates: start: 20111009, end: 20120226
  13. LOPERAMIDE HYDROCHLORIDE [Concomitant]
     Indication: DIARRHOEA
     Dosage: 1 MG, UNKNOWN/D
     Route: 048
     Dates: start: 20111207, end: 20120226
  14. ERLOTINIB HYDROCHLORIDE [Suspect]
     Dosage: 100 MG, UID/QD
     Route: 048
     Dates: start: 20111228, end: 20120226
  15. GEMCITABINE HYDROCHLORIDE [Suspect]
     Dosage: 1000 MG/M2, UID/QD
     Route: 041
     Dates: start: 20111116, end: 20111116
  16. GEMCITABINE HYDROCHLORIDE [Suspect]
     Dosage: 1000 MG/M2, UID/QD
     Route: 041
     Dates: start: 20111130, end: 20111130
  17. LIPANCREA [Concomitant]
     Dosage: 450 MG, UID/QD
     Route: 048
     Dates: start: 20120301
  18. BIO THREE [Concomitant]
     Dosage: 3 G, UID/QD
     Route: 048
     Dates: start: 20111006, end: 20120226
  19. LOXOPROFEN [Concomitant]
     Dosage: 180 MG, UID/QD
     Route: 048
     Dates: start: 20120111
  20. LIPANCREA [Concomitant]
     Dosage: 450 MG, UID/QD
     Route: 048
     Dates: start: 20121014, end: 20120226
  21. LANSOPRAZOLE [Concomitant]
     Dosage: 15 MG, UID/QD
     Route: 048
     Dates: start: 20120301
  22. LOXOPROFEN [Concomitant]
     Dosage: 60 MG, UID/QD
     Route: 048
     Dates: start: 20111214, end: 20120110
  23. FAMOTIDINE [Concomitant]
     Indication: PRODUCT USED FOR UNKNOWN INDICATION
     Dosage: 20 MG, UID/QD
     Route: 042
     Dates: start: 20120228, end: 20120229
  24. GEMCITABINE HYDROCHLORIDE [Suspect]
     Dosage: 1000 MG/M2, UID/QD
     Route: 041
     Dates: start: 20111019, end: 20111102
  25. GEMCITABINE HYDROCHLORIDE [Suspect]
     Dosage: 1000 MG/M2, UID/QD
     Route: 041
     Dates: start: 20111207, end: 20111207
  26. GEMCITABINE HYDROCHLORIDE [Suspect]
     Dosage: 1000 MG/M2, UID/QD
     Route: 041
     Dates: start: 20111228, end: 20111228
  27. GEMCITABINE HYDROCHLORIDE [Suspect]
     Dosage: 1000 MG/M2, UID/QD
     Route: 041
     Dates: start: 20120104, end: 20120104
  28. METFORMIN HCL [Concomitant]
     Indication: DIABETES MELLITUS
     Dosage: 500 MG, UID/QD
     Route: 048
     Dates: start: 20111026, end: 20111116
  29. GEMCITABINE HYDROCHLORIDE [Suspect]
     Indication: ADENOCARCINOMA
     Dosage: 1000 MG/M2, UID/QD
     Route: 041
     Dates: start: 20110929, end: 20110929
  30. GEMCITABINE HYDROCHLORIDE [Suspect]
     Dosage: 1000 MG/M2, UID/QD
     Route: 041
     Dates: start: 20120201, end: 20120201
  31. METFORMIN HCL [Concomitant]
     Dosage: 500 MG, UID/QD
     Route: 048
     Dates: start: 20111014, end: 20111025
  32. MEDICON [Concomitant]
     Indication: PRODUCT USED FOR UNKNOWN INDICATION
     Dosage: 45 MG, UID/QD
     Route: 048
     Dates: end: 20111004
  33. GEMCITABINE HYDROCHLORIDE [Suspect]
     Dosage: 1000 MG/M2, UID/QD
     Route: 041
     Dates: start: 20120208, end: 20120208
  34. GEMCITABINE HYDROCHLORIDE [Suspect]
     Dosage: 1000 MG/M2, UID/QD
     Route: 041
     Dates: start: 20120222, end: 20120222
  35. OMEPRAZOLE [Concomitant]
     Indication: PRODUCT USED FOR UNKNOWN INDICATION
     Dosage: 40 MG, UID/QD
     Route: 042
     Dates: start: 20111005, end: 20111008
  36. LOPERAMIDE HYDROCHLORIDE [Concomitant]
     Dosage: 1 MG, UNKNOWN/D
     Route: 048
     Dates: start: 20120301

REACTIONS (20)
  - LIVER ABSCESS [None]
  - HYPERGLYCAEMIA [None]
  - PYREXIA [None]
  - HYPOALBUMINAEMIA [None]
  - ASPARTATE AMINOTRANSFERASE INCREASED [None]
  - DIARRHOEA [None]
  - NEOPLASM MALIGNANT [None]
  - NEUTROPHIL COUNT DECREASED [None]
  - INSOMNIA [None]
  - CHOLANGITIS [None]
  - ANAEMIA [None]
  - WHITE BLOOD CELL COUNT DECREASED [None]
  - ALANINE AMINOTRANSFERASE INCREASED [None]
  - PLATELET COUNT DECREASED [None]
  - HAEMATURIA [None]
  - DERMATITIS ACNEIFORM [None]
  - PARONYCHIA [None]
  - CHOLECYSTITIS ACUTE [None]
  - BACK PAIN [None]
  - BLOOD BILIRUBIN INCREASED [None]
